FAERS Safety Report 4707530-3 (Version None)
Quarter: 2005Q3

REPORT INFORMATION
  Report Type: 
  Country: None (occurrence: None)
  Receive Date: 20050701
  Receipt Date: 20050622
  Transmission Date: 20060218
  Serious: Yes (Disabling)
  Sender: FDA-Public Use
  Company Number: 2005090060

PATIENT
  Age: 38 Year
  Sex: Female

DRUGS (3)
  1. SOMAVERT [Suspect]
     Indication: ACROMEGALY
     Dosage: SEE IMAGE
     Route: 058
     Dates: start: 20050311
  2. CORTISONE ^CIBA-GEIGY^ (CORTISONE ACETATE) [Concomitant]
  3. CYCLACUR 9ESTRADIOL VALERATE, NORGESTREL) [Concomitant]

REACTIONS (1)
  - FATIGUE [None]
